FAERS Safety Report 8401902-1 (Version None)
Quarter: 2012Q2

REPORT INFORMATION
  Report Type: 
  Country: None (occurrence: None)
  Receive Date: 20120529
  Receipt Date: 20120516
  Transmission Date: 20120825
  Serious: Yes (Other)
  Sender: FDA-Public Use
  Company Number: 2012SP026388

PATIENT
  Age: 28 Year
  Sex: Female

DRUGS (2)
  1. IMPLANON [Suspect]
     Indication: PRODUCT USED FOR UNKNOWN INDICATION
     Dosage: SC
     Route: 058
     Dates: end: 20080112
  2. MIRENA [Suspect]
     Indication: PRODUCT USED FOR UNKNOWN INDICATION
     Dates: start: 20080111, end: 20111123

REACTIONS (2)
  - PREMATURE MENOPAUSE [None]
  - INFERTILITY [None]
